FAERS Safety Report 8917068 (Version 1)
Quarter: 2012Q4

REPORT INFORMATION
  Report Type: Report from Study
  Country: US (occurrence: US)
  Receive Date: 20121120
  Receipt Date: 20121120
  Transmission Date: 20130627
  Serious: Yes (Hospitalization, Other)
  Sender: FDA-Public Use
  Company Number: US-ABBOTT-12P-163-1007792-00

PATIENT
  Age: 74 Year
  Sex: Female
  Weight: 74.91 kg

DRUGS (1)
  1. HUMIRA [Suspect]
     Indication: CROHN^S DISEASE
     Dates: start: 201207

REACTIONS (3)
  - Asthenia [Unknown]
  - Dehydration [Recovered/Resolved]
  - Crohn^s disease [Recovered/Resolved]
